FAERS Safety Report 8890050 (Version 2)
Quarter: 2012Q4

REPORT INFORMATION
  Report Type: 
  Country: US (occurrence: US)
  Receive Date: 20121107
  Receipt Date: 20121120
  Transmission Date: 20130627
  Serious: No
  Sender: FDA-Public Use
  Company Number: US-PFIZER INC-2012273858

PATIENT
  Age: 56 Year
  Sex: Female
  Weight: 75 kg

DRUGS (5)
  1. PREMARIN [Suspect]
     Indication: MENOPAUSAL SYMPTOMS
     Dosage: 0.625 mg, 1x/day
     Route: 048
     Dates: end: 2010
  2. PREMARIN [Suspect]
     Dosage: 0.625 mg, 1x/day
     Route: 048
     Dates: start: 20121011
  3. ZOLOFT [Concomitant]
     Dosage: UNK
  4. DETROL [Concomitant]
     Dosage: UNK
  5. SIMVASTATIN [Concomitant]
     Dosage: UNK

REACTIONS (1)
  - Hyperhidrosis [Recovered/Resolved]
